FAERS Safety Report 16000527 (Version 5)
Quarter: 2021Q3

REPORT INFORMATION
  Report Type: Spontaneous
  Country: US (occurrence: US)
  Receive Date: 20190225
  Receipt Date: 20210922
  Transmission Date: 20211014
  Serious: Yes (Disabling, Other)
  Sender: FDA-Public Use
  Company Number: US-MYLANLABS-2019M1015459

PATIENT
  Sex: Female
  Weight: 89 kg

DRUGS (2)
  1. XULANE [Suspect]
     Active Substance: ETHINYL ESTRADIOL\NORELGESTROMIN
     Indication: CONTRACEPTION
     Dosage: UNK
     Route: 062
     Dates: start: 2016, end: 20170825
  2. XULANE [Suspect]
     Active Substance: ETHINYL ESTRADIOL\NORELGESTROMIN
     Dosage: UNK
     Route: 062

REACTIONS (16)
  - Blindness [Unknown]
  - Skin odour abnormal [Not Recovered/Not Resolved]
  - Abortion spontaneous [Recovered/Resolved]
  - Deformity [Unknown]
  - Vomiting [Not Recovered/Not Resolved]
  - Maternal exposure during pregnancy [Recovered/Resolved]
  - Abdominal discomfort [Unknown]
  - Amnesia [Unknown]
  - Nausea [Not Recovered/Not Resolved]
  - Drug ineffective [Unknown]
  - Loss of consciousness [Unknown]
  - Facial pain [Not Recovered/Not Resolved]
  - Muscular weakness [Unknown]
  - Blepharospasm [Unknown]
  - Menstrual disorder [Unknown]
  - Seizure [Unknown]

NARRATIVE: CASE EVENT DATE: 2017
